FAERS Safety Report 11812291 (Version 3)
Quarter: 2015Q4

REPORT INFORMATION
  Report Type: Report from Study
  Country: US (occurrence: US)
  Receive Date: 20151208
  Receipt Date: 20151215
  Transmission Date: 20160305
  Serious: Yes (Death, Hospitalization, Other)
  Sender: FDA-Public Use
  Company Number: US-009507513-1512USA000877

PATIENT
  Age: 69 Year
  Sex: Male

DRUGS (3)
  1. VELPATASVIR [Suspect]
     Active Substance: VELPATASVIR
     Indication: CHRONIC HEPATITIS C
  2. REBETOL [Suspect]
     Active Substance: RIBAVIRIN
     Indication: CHRONIC HEPATITIS C
     Dosage: 1000 MG WITH BODY WEIGHT {75 KG AND 1200 MG WITH BODY WEIGHT }75 KG
     Route: 048
  3. SOFOSBUVIR [Suspect]
     Active Substance: SOFOSBUVIR
     Indication: CHRONIC HEPATITIS C

REACTIONS (8)
  - Sepsis [Fatal]
  - Peritonitis bacterial [Unknown]
  - Colitis ischaemic [Unknown]
  - Atrial fibrillation [Unknown]
  - Fungal peritonitis [Unknown]
  - Pneumonia [Unknown]
  - Pneumoperitoneum [Unknown]
  - Duodenal ulcer perforation [Unknown]
